FAERS Safety Report 26019148 (Version 2)
Quarter: 2025Q4

REPORT INFORMATION
  Report Type: Report from Study
  Country: IL (occurrence: IL)
  Receive Date: 20251110
  Receipt Date: 20251210
  Transmission Date: 20260117
  Serious: Yes (Other)
  Sender: ABBVIE
  Company Number: IL-ABBVIE-6537103

PATIENT
  Age: 77 Year
  Sex: Female

DRUGS (2)
  1. CARBIDOPA\LEVODOPA [Suspect]
     Active Substance: CARBIDOPA\LEVODOPA
     Indication: Parkinson^s disease
     Dosage: MORNING DOSAGE:5.5ML?ADDITIONAL TUBE FILING: 3ML, CONTINUOUS DOSAGE:2.3ML/H EXTRA DOSAGE:1.20ML  ...
     Route: 050
     Dates: start: 20230627
  2. CARBIDOPA\LEVODOPA [Suspect]
     Active Substance: CARBIDOPA\LEVODOPA
     Dosage: MORNING DOSAGE:5.5ML?ADDITIONAL TUBE FILING: 3ML, CONTINUOUS DOSAGE:2.3ML/H EXTRA DOSAGE:1.00ML  ...
     Route: 050

REACTIONS (1)
  - Neoplasm malignant [Unknown]
